FAERS Safety Report 7960056-6 (Version None)
Quarter: 2011Q4

REPORT INFORMATION
  Report Type: 
  Country: None (occurrence: None)
  Receive Date: 20111206
  Receipt Date: 20111128
  Transmission Date: 20120403
  Serious: Yes (Hospitalization)
  Sender: FDA-Public Use
  Company Number: PHHY2011JP105273

PATIENT
  Sex: Male

DRUGS (13)
  1. NEORAL [Suspect]
     Indication: DERMATITIS ATOPIC
     Dosage: 175 MG, UNK
     Route: 048
     Dates: start: 20100215, end: 20100517
  2. HIRUDOID [Concomitant]
     Indication: DERMATITIS ATOPIC
  3. ANTEBATE [Concomitant]
     Indication: DERMATITIS ATOPIC
  4. NEORAL [Suspect]
     Dosage: 175 MG, UNK
     Route: 048
     Dates: start: 20100531, end: 20100621
  5. NEORAL [Suspect]
     Dosage: 175 MG, UNK
     Route: 048
     Dates: start: 20100705, end: 20100927
  6. CLARITIN [Suspect]
     Dosage: BETWEEN 0 AND 10MG/DAY ONLY AT THE TIME OF NEED
     Route: 048
  7. LIDOMEX [Concomitant]
     Indication: DERMATITIS ATOPIC
     Dosage: UNK
     Dates: start: 20100531
  8. PROTOPIC [Concomitant]
     Indication: DERMATITIS ATOPIC
  9. CLARITIN [Suspect]
     Indication: DERMATITIS ATOPIC
     Dosage: 10 MG, UNK
     Route: 048
     Dates: start: 20100215, end: 20100510
  10. NEORAL [Suspect]
     Dosage: 175 MG, UNK
     Route: 048
     Dates: start: 20101011, end: 20101213
  11. FULMETA [Concomitant]
     Indication: DERMATITIS ATOPIC
     Dates: start: 20100215
  12. BETAMETHASONE VALERATE [Concomitant]
     Indication: DERMATITIS ATOPIC
  13. NEORAL [Suspect]
     Dosage: 175 MG, UNK
     Route: 048
     Dates: start: 20101227, end: 20110101

REACTIONS (2)
  - JAUNDICE [None]
  - LIVER DISORDER [None]
